FAERS Safety Report 18139341 (Version 1)
Quarter: 2020Q3

REPORT INFORMATION
  Report Type: Report from Study
  Country: US (occurrence: US)
  Receive Date: 20200812
  Receipt Date: 20200812
  Transmission Date: 20201103
  Serious: Yes (Death)
  Sender: FDA-Public Use
  Company Number: US-TAIHO ONCOLOGY  INC-EU-2020-02806

PATIENT
  Age: 63 Year
  Sex: Male

DRUGS (2)
  1. LONSURF [Suspect]
     Active Substance: TIPIRACIL HYDROCHLORIDE\TRIFLURIDINE
     Indication: CHEMOTHERAPY
     Dosage: CYCLE UNKNOWN
     Route: 048
     Dates: start: 20200515, end: 20200731
  2. LONSURF [Suspect]
     Active Substance: TIPIRACIL HYDROCHLORIDE\TRIFLURIDINE
     Indication: TESTICULAR FAILURE

REACTIONS (2)
  - Intentional product use issue [Unknown]
  - Death [Fatal]

NARRATIVE: CASE EVENT DATE: 20200731
